FAERS Safety Report 14509438 (Version 1)
Quarter: 2018Q1

REPORT INFORMATION
  Report Type: Spontaneous
  Country: JP (occurrence: JP)
  Receive Date: 20180209
  Receipt Date: 20180209
  Transmission Date: 20180509
  Serious: Yes (Other)
  Sender: FDA-Public Use
  Company Number: JP-ALK-ABELLO A/S-2017AA002836

PATIENT

DRUGS (1)
  1. MITICURE MITE SUBLINGUAL TABLET [Suspect]
     Active Substance: DERMATOPHAGOIDES FARINAE\DERMATOPHAGOIDES PTERONYSSINUS
     Dosage: UNK UNK, QD
     Route: 060
     Dates: start: 20170714

REACTIONS (2)
  - Pregnancy [Recovered/Resolved]
  - Abortion [Recovered/Resolved]

NARRATIVE: CASE EVENT DATE: 2017
